FAERS Safety Report 6139621-7 (Version None)
Quarter: 2009Q1

REPORT INFORMATION
  Report Type: 
  Country: None (occurrence: None)
  Receive Date: 20090330
  Receipt Date: 20080820
  Transmission Date: 20090719
  Serious: Yes (Hospitalization)
  Sender: FDA-Public Use
  Company Number: 176390USA

PATIENT
  Age: 70 Year
  Sex: Male

DRUGS (2)
  1. AMOXICILLIN AND CLAVULANATE POTASSIUM [Suspect]
     Indication: DIVERTICULITIS
     Dosage: 875MG / 12MG TOTAL 40 TABLETS (4 IN 1 D), ORAL
     Route: 048
     Dates: start: 20080616, end: 20080626
  2. ATORVASTATIN CALCIUM [Suspect]
     Indication: BLOOD CHOLESTEROL INCREASED
     Dosage: 20 MG (20 MG, 1 IN 1 D), ORAL
     Route: 048
     Dates: start: 19980101, end: 20080701

REACTIONS (1)
  - JAUNDICE CHOLESTATIC [None]
